FAERS Safety Report 12430622 (Version 1)
Quarter: 2016Q2

REPORT INFORMATION
  Report Type: Report from Study
  Country: BR (occurrence: BR)
  Receive Date: 20160602
  Receipt Date: 20160602
  Transmission Date: 20160815
  Serious: No
  Sender: FDA-Public Use
  Company Number: PHHY2016BR075701

PATIENT
  Sex: Female
  Weight: 74 kg

DRUGS (3)
  1. TASIGNA [Suspect]
     Active Substance: NILOTINIB
     Indication: CHRONIC MYELOID LEUKAEMIA
     Dosage: 2 DF OF 200 MG, BID (2 TABLETS OF 200 MG IN THE MORNING AND 2 TABLETS OF 200 MG AT NIGHT)
     Route: 048
  2. DASATINIB [Suspect]
     Active Substance: DASATINIB
     Indication: CHRONIC MYELOID LEUKAEMIA
     Route: 065
  3. GLIVEC [Suspect]
     Active Substance: IMATINIB MESYLATE
     Indication: CHRONIC MYELOID LEUKAEMIA
     Dosage: 2 DF OF 400 MG, QD
     Route: 048

REACTIONS (7)
  - Blood pressure decreased [Unknown]
  - Increased appetite [Unknown]
  - Weight increased [Unknown]
  - Feeling hot [Unknown]
  - Malaise [Recovered/Resolved]
  - Dizziness [Unknown]
  - Abdominal pain upper [Unknown]
